FAERS Safety Report 5466289-5 (Version None)
Quarter: 2007Q3

REPORT INFORMATION
  Report Type: 
  Country: None (occurrence: None)
  Receive Date: 20070919
  Receipt Date: 20070905
  Transmission Date: 20080115
  Serious: Yes (Hospitalization)
  Sender: FDA-Public Use
  Company Number: GXKR2007BG07760

PATIENT
  Age: 57 Year
  Sex: Male

DRUGS (1)
  1. ATENOLOL [Suspect]
     Dosage: 500 MG, ONCE/SINGLE, ORAL
     Route: 048

REACTIONS (6)
  - BRADYCARDIA [None]
  - HYPOTENSION [None]
  - HYPOVOLAEMIA [None]
  - INTENTIONAL OVERDOSE [None]
  - MYOCARDIAL ISCHAEMIA [None]
  - PRINZMETAL ANGINA [None]
